FAERS Safety Report 9204138 (Version 2)
Quarter: 2013Q2

REPORT INFORMATION
  Report Type: Spontaneous
  Country: US (occurrence: US)
  Receive Date: 20130402
  Receipt Date: 20130422
  Transmission Date: 20140414
  Serious: Yes (Death)
  Sender: FDA-Public Use
  Company Number: US-ACTELION-A-NJ2013-81300

PATIENT
  Age: 83 Year
  Sex: Male

DRUGS (17)
  1. TRACLEER [Suspect]
     Indication: PULMONARY ARTERIAL HYPERTENSION
     Dosage: 125 MG, UNK
     Route: 048
     Dates: start: 20100608, end: 20130321
  2. COUMADIN [Concomitant]
     Dosage: 3 MG, UNK
     Dates: start: 20100306
  3. ASPIRIN [Concomitant]
     Dosage: 81 MG, QD
     Dates: start: 20120814
  4. ATORVASTATIN CALCIUM [Concomitant]
     Dosage: 40 MG, UNK
     Dates: start: 20120917
  5. CALCIUM + VITAMIN D [Concomitant]
     Dosage: UNK, QD
     Dates: start: 20120814
  6. CARVEDILOL [Concomitant]
     Dosage: 6.25 MG, BID
     Dates: start: 20111013
  7. FORADIL [Concomitant]
     Dosage: 12 MCG, UNK
     Dates: start: 20100616
  8. GLIPIZIDE [Concomitant]
     Dosage: 10 MG, BID
     Dates: start: 20100405
  9. LANTUS [Concomitant]
     Dosage: 20 UNK, QD
     Dates: start: 20100220
  10. LEVOTHYROXINE SODIUM [Concomitant]
     Dosage: 100 MCG, QD
     Dates: start: 20100401
  11. METFORMIN HCL [Concomitant]
     Dosage: 1000 MG, BID
     Dates: start: 20110525
  12. MULTIVITAMIN [Concomitant]
     Dosage: UNK
     Dates: start: 20120814
  13. NITROSTAT [Concomitant]
     Dosage: 0.04 MG, PRN
     Dates: start: 20101227
  14. OMEPRAZOLE [Concomitant]
     Dosage: 40 MG, QD
     Dates: start: 20110427
  15. POTASSIUM CHLORIDE [Concomitant]
     Dosage: 20 MEQ, UNK
     Dates: start: 20100220
  16. TORSEMIDE [Concomitant]
     Dosage: 40 MG, QD
     Dates: start: 20110511
  17. VITAMIN D [Concomitant]
     Dosage: UNK
     Dates: start: 20130218

REACTIONS (1)
  - Death [Fatal]
